FAERS Safety Report 15386403 (Version 1)
Quarter: 2018Q3

REPORT INFORMATION
  Report Type: Spontaneous
  Country: US (occurrence: US)
  Receive Date: 20180914
  Receipt Date: 20180914
  Transmission Date: 20181010
  Serious: Yes (Hospitalization, Other)
  Sender: FDA-Public Use
  Company Number: US-ASTRAZENECA-2018SF15873

PATIENT
  Age: 51 Year
  Sex: Female
  Weight: 86.2 kg

DRUGS (1)
  1. BYDUREON BCISE [Suspect]
     Active Substance: EXENATIDE
     Indication: TYPE 2 DIABETES MELLITUS
     Route: 058
     Dates: start: 2018

REACTIONS (3)
  - Injection site mass [Not Recovered/Not Resolved]
  - Gastric perforation [Not Recovered/Not Resolved]
  - Injection site necrosis [Recovered/Resolved with Sequelae]

NARRATIVE: CASE EVENT DATE: 2018
